FAERS Safety Report 23093255 (Version 1)
Quarter: 2023Q4

REPORT INFORMATION
  Report Type: Report from Study
  Country: DE (occurrence: DE)
  Receive Date: 20231022
  Receipt Date: 20231022
  Transmission Date: 20240109
  Serious: Yes (Other)
  Sender: FDA-Public Use
  Company Number: DE-002147023-NVSC2023DE222337

PATIENT
  Age: 43 Year
  Sex: Female

DRUGS (4)
  1. MEKINIST [Suspect]
     Active Substance: TRAMETINIB DIMETHYL SULFOXIDE
     Indication: Malignant melanoma
     Dosage: UNK
     Route: 065
     Dates: start: 202105, end: 202107
  2. MEKINIST [Suspect]
     Active Substance: TRAMETINIB DIMETHYL SULFOXIDE
     Dosage: UNK
     Route: 065
     Dates: start: 202107, end: 202206
  3. TAFINLAR [Suspect]
     Active Substance: DABRAFENIB MESYLATE
     Indication: Malignant melanoma
     Dosage: UNK
     Route: 065
     Dates: start: 202105, end: 202107
  4. TAFINLAR [Suspect]
     Active Substance: DABRAFENIB MESYLATE
     Dosage: UNK
     Route: 065
     Dates: start: 202107, end: 202206

REACTIONS (13)
  - Major depression [Unknown]
  - Depressed mood [Unknown]
  - Drug intolerance [Unknown]
  - Pain [Unknown]
  - Swelling [Unknown]
  - Lymphoedema [Unknown]
  - Anxiety [Unknown]
  - Scar [Unknown]
  - Feeling of despair [Unknown]
  - Nervousness [Unknown]
  - Tension [Unknown]
  - Arthralgia [Unknown]
  - Fatigue [Unknown]
